FAERS Safety Report 9749528 (Version 2)
Quarter: 2013Q4

REPORT INFORMATION
  Report Type: Spontaneous
  Country: IT (occurrence: None)
  Receive Date: 20130912
  Receipt Date: 20131030
  Transmission Date: 20140711
  Serious: Yes (Other)
  Sender: FDA-Public Use
  Company Number: AUR-APL-2013-07514

PATIENT
  Age: 83 Year
  Sex: Female

DRUGS (6)
  1. ATENOLOL (ATNEOLOL) [Suspect]
     Indication: PRODUCT USED FOR UNKNOWN INDICATION
     Dates: start: 20120801, end: 20130603
  2. CYTOTEC (MISOPROSTOL) [Concomitant]
  3. RAMIPRIL (RAMIPRIL) [Concomitant]
  4. FUROSEMIDE (FUROSEMIDE) [Concomitant]
  5. NITROGLYCERIN (GLYCERYL TRINITRATE) [Concomitant]
  6. ACETYL SALICYLIC ACID (ACETYLSALICYLIC ACID) [Concomitant]

REACTIONS (1)
  - Presyncope [None]
